FAERS Safety Report 26160127 (Version 1)
Quarter: 2025Q4

REPORT INFORMATION
  Report Type: Spontaneous
  Country: US (occurrence: None)
  Receive Date: 20251216
  Receipt Date: 20251216
  Transmission Date: 20260118
  Serious: No
  Sender: ENDO
  Company Number: US-ENDO USA, INC.-2025-001748

PATIENT
  Sex: Male

DRUGS (4)
  1. XIAFLEX [Suspect]
     Active Substance: COLLAGENASE CLOSTRIDIUM HISTOLYTICUM
     Indication: Peyronie^s disease
     Dosage: UNK UNKNOWN, SINGLE (CYCLE 1, INJECTION 1)
     Dates: start: 20250327, end: 20250327
  2. XIAFLEX [Suspect]
     Active Substance: COLLAGENASE CLOSTRIDIUM HISTOLYTICUM
     Dosage: UNK UNKNOWN, SINGLE (CYCLE 1, INJECTION 2)
     Dates: start: 20250403, end: 20250403
  3. XIAFLEX [Suspect]
     Active Substance: COLLAGENASE CLOSTRIDIUM HISTOLYTICUM
     Dosage: UNK UNKNOWN, SINGLE (CYCLE 2, INJECTION 1)
     Dates: start: 20250617, end: 20250617
  4. XIAFLEX [Suspect]
     Active Substance: COLLAGENASE CLOSTRIDIUM HISTOLYTICUM
     Dosage: UNK UNKNOWN, SINGLE (CYCLE 2, INJECTION 2)
     Dates: start: 20250619, end: 20250619

REACTIONS (6)
  - Peyronie^s disease [Not Recovered/Not Resolved]
  - Penile swelling [Recovered/Resolved]
  - Penile contusion [Recovered/Resolved]
  - Penile blister [Recovered/Resolved]
  - Inappropriate schedule of product administration [Recovered/Resolved]
  - Therapeutic product effect incomplete [Not Recovered/Not Resolved]

NARRATIVE: CASE EVENT DATE: 20250101
